FAERS Safety Report 9515129 (Version 1)
Quarter: 2013Q3

REPORT INFORMATION
  Report Type: Spontaneous
  Country: CH (occurrence: CH)
  Receive Date: 20130911
  Receipt Date: 20130911
  Transmission Date: 20140515
  Serious: Yes (Death, Hospitalization)
  Sender: FDA-Public Use
  Company Number: CH-JNJFOC-20130904501

PATIENT
  Age: 85 Year
  Sex: Female

DRUGS (6)
  1. XARELTO [Suspect]
     Indication: ATRIAL FLUTTER
     Route: 048
     Dates: start: 201304, end: 20130810
  2. XARELTO [Suspect]
     Indication: ATRIAL FIBRILLATION
     Route: 048
     Dates: start: 201304, end: 20130810
  3. DILZEM [Suspect]
     Indication: PRODUCT USED FOR UNKNOWN INDICATION
     Route: 065
  4. ATACAND [Concomitant]
     Route: 065
  5. CONCOR [Concomitant]
     Route: 065
  6. TOREM [Concomitant]
     Route: 065

REACTIONS (3)
  - Cerebral haemorrhage [Fatal]
  - Hemianopia [Fatal]
  - Paresis [Fatal]
